FAERS Safety Report 6721701-6 (Version None)
Quarter: 2010Q2

REPORT INFORMATION
  Report Type: 
  Country: None (occurrence: None)
  Receive Date: 20100512
  Receipt Date: 20100510
  Transmission Date: 20101027
  Serious: No
  Sender: FDA-Public Use
  Company Number: US-ROXANE LABORATORIES, INC.-2010-RO-00273RO

PATIENT
  Sex: Female

DRUGS (11)
  1. AZATHIOPRINE [Suspect]
     Indication: COLITIS MICROSCOPIC
     Dosage: 50 MG
     Route: 048
     Dates: start: 20100225, end: 20100302
  2. AZATHIOPRINE [Suspect]
     Dates: start: 20091123, end: 20091206
  3. PREDNISONE TAB [Suspect]
     Indication: COLITIS MICROSCOPIC
     Route: 048
     Dates: start: 20090805
  4. PREDNISONE TAB [Suspect]
     Dosage: 2.5 MG
     Route: 048
  5. THYROID TAB [Concomitant]
     Indication: HYPOTHYROIDISM
  6. POTASSIUM [Concomitant]
     Indication: BLOOD POTASSIUM DECREASED
     Dosage: 50 MG
  7. POTASSIUM [Concomitant]
  8. CALCIUM [Concomitant]
  9. MULTI-VITAMIN [Concomitant]
  10. VITAMIN D [Concomitant]
  11. CALCIUM-VITAMIN D [Concomitant]

REACTIONS (8)
  - ABDOMINAL PAIN UPPER [None]
  - ASTHENIA [None]
  - BLOOD POTASSIUM DECREASED [None]
  - COLITIS [None]
  - DIARRHOEA [None]
  - NAUSEA [None]
  - REBOUND EFFECT [None]
  - WEIGHT DECREASED [None]
